FAERS Safety Report 8157691-1 (Version None)
Quarter: 2012Q1

REPORT INFORMATION
  Report Type: 
  Country: None (occurrence: None)
  Receive Date: 20120222
  Receipt Date: 20120214
  Transmission Date: 20120608
  Serious: Yes (Other)
  Sender: FDA-Public Use
  Company Number: FR-ASTRAZENECA-2012SE01962

PATIENT
  Age: 22246 Day
  Sex: Female

DRUGS (3)
  1. LEXOMIL [Concomitant]
     Indication: ANXIETY
     Dates: start: 20060101
  2. QUETIAPINE FUMARATE [Suspect]
     Indication: BIPOLAR I DISORDER
     Route: 048
     Dates: start: 20111124, end: 20111125
  3. ESCITALOPRAM OXALATE [Concomitant]
     Indication: DEPRESSION
     Dates: start: 20110915

REACTIONS (5)
  - AGITATION [None]
  - MYALGIA [None]
  - HALLUCINATION, VISUAL [None]
  - HYPERHIDROSIS [None]
  - HYPERTHERMIA [None]
